FAERS Safety Report 8844062 (Version 1)
Quarter: 2012Q4

REPORT INFORMATION
  Report Type: 
  Country: SE (occurrence: SE)
  Receive Date: 20121017
  Receipt Date: 20121017
  Transmission Date: 20130627
  Serious: Yes (Life-Threatening)
  Sender: FDA-Public Use
  Company Number: SE-009507513-1210SWE006404

PATIENT
  Sex: Female

DRUGS (1)
  1. NOXAFIL [Suspect]
     Indication: PROPHYLAXIS
     Dosage: Dose: 40 mg/ml
     Route: 048

REACTIONS (1)
  - Pancreatitis [Unknown]
